FAERS Safety Report 11981591 (Version 1)
Quarter: 2016Q1

REPORT INFORMATION
  Report Type: Spontaneous
  Country: FR (occurrence: FR)
  Receive Date: 20160131
  Receipt Date: 20160131
  Transmission Date: 20160526
  Serious: Yes (Other)
  Sender: FDA-Public Use
  Company Number: FR-BRISTOL-MYERS SQUIBB COMPANY-BMS-2012-000039

PATIENT
  Age: 1 Day
  Sex: Male
  Weight: 2.5 kg

DRUGS (2)
  1. LOXEN LP [Suspect]
     Active Substance: NICARDIPINE
     Indication: PRODUCT USED FOR UNKNOWN INDICATION
     Dosage: 50 MG, UNK
     Route: 064
  2. BARACLUDE [Suspect]
     Active Substance: ENTECAVIR
     Indication: PRODUCT USED FOR UNKNOWN INDICATION
     Dosage: .5 MG, QD
     Route: 064
     Dates: start: 20120123

REACTIONS (2)
  - Breech presentation [Unknown]
  - Foetal exposure during pregnancy [Unknown]
